FAERS Safety Report 18381613 (Version 2)
Quarter: 2020Q4

REPORT INFORMATION
  Report Type: Spontaneous
  Country: IT (occurrence: IT)
  Receive Date: 20201014
  Receipt Date: 20201118
  Transmission Date: 20210114
  Serious: Yes (Other)
  Sender: FDA-Public Use
  Company Number: IT-SAMSUNG BIOEPIS-SB-2020-30817

PATIENT
  Age: 77 Year
  Sex: Male
  Weight: 76 kg

DRUGS (1)
  1. BENEPALI [Suspect]
     Active Substance: ETANERCEPT
     Indication: PSORIASIS
     Route: 058
     Dates: start: 20200711, end: 20200807

REACTIONS (2)
  - Therapy non-responder [Not Recovered/Not Resolved]
  - Dermatitis exfoliative generalised [Not Recovered/Not Resolved]

NARRATIVE: CASE EVENT DATE: 20200807
